FAERS Safety Report 5761642-4 (Version None)
Quarter: 2008Q2

REPORT INFORMATION
  Report Type: 
  Country: None (occurrence: None)
  Receive Date: 20080606
  Receipt Date: 20080527
  Transmission Date: 20081010
  Serious: Yes (Other)
  Sender: FDA-Public Use
  Company Number: US-PFIZER INC-2008044095

PATIENT
  Sex: Female

DRUGS (2)
  1. CHANTIX [Suspect]
     Indication: SMOKING CESSATION THERAPY
     Dates: start: 20070924, end: 20070101
  2. MONTELUKAST SODIUM [Concomitant]

REACTIONS (15)
  - ABDOMINAL DISTENSION [None]
  - FEELING ABNORMAL [None]
  - FLATULENCE [None]
  - FLUID RETENTION [None]
  - GAIT DISTURBANCE [None]
  - GASTROINTESTINAL DISORDER [None]
  - HEADACHE [None]
  - MOTOR DYSFUNCTION [None]
  - MULTIPLE SCLEROSIS [None]
  - MYALGIA [None]
  - OCULAR ICTERUS [None]
  - OEDEMA [None]
  - PRESYNCOPE [None]
  - VISUAL DISTURBANCE [None]
  - WEIGHT INCREASED [None]
